FAERS Safety Report 25488342 (Version 1)
Quarter: 2025Q2

REPORT INFORMATION
  Report Type: Spontaneous
  Country: JP (occurrence: JP)
  Receive Date: 20250627
  Receipt Date: 20250627
  Transmission Date: 20250716
  Serious: Yes (Other)
  Sender: ELI LILLY AND COMPANY
  Company Number: JP-ELI_LILLY_AND_COMPANY-JP202506018511

PATIENT
  Age: 74 Year
  Sex: Male

DRUGS (9)
  1. CYRAMZA [Suspect]
     Active Substance: RAMUCIRUMAB
     Indication: Non-small cell lung cancer
     Route: 041
     Dates: start: 202106, end: 2021
  2. CYRAMZA [Suspect]
     Active Substance: RAMUCIRUMAB
     Route: 041
     Dates: start: 2021, end: 2021
  3. CYRAMZA [Suspect]
     Active Substance: RAMUCIRUMAB
     Route: 041
     Dates: start: 2021, end: 202110
  4. DOCETAXEL [Suspect]
     Active Substance: DOCETAXEL
     Indication: Non-small cell lung cancer
     Route: 065
     Dates: start: 202106, end: 2021
  5. DOCETAXEL [Suspect]
     Active Substance: DOCETAXEL
     Route: 065
     Dates: start: 2021, end: 2021
  6. DOCETAXEL [Suspect]
     Active Substance: DOCETAXEL
     Route: 065
     Dates: start: 2021, end: 202110
  7. BILASTINE [Concomitant]
     Active Substance: BILASTINE
     Route: 048
  8. FUROSEMIDE [Concomitant]
     Active Substance: FUROSEMIDE
     Route: 048
  9. CLOSTRIDIUM BUTYRICUM [Concomitant]
     Route: 048

REACTIONS (3)
  - Osteonecrosis of jaw [Recovering/Resolving]
  - Periodontitis [Recovering/Resolving]
  - Stomatitis [Recovering/Resolving]

NARRATIVE: CASE EVENT DATE: 20210701
